FAERS Safety Report 6613481-X (Version None)
Quarter: 2010Q1

REPORT INFORMATION
  Report Type: 
  Country: None (occurrence: None)
  Receive Date: 20100304
  Receipt Date: 20100222
  Transmission Date: 20100710
  Serious: Yes (Death, Other)
  Sender: FDA-Public Use
  Company Number: JP-JNJFOC-20100206189

PATIENT
  Sex: Female
  Weight: 50 kg

DRUGS (10)
  1. DOXORUBICIN HCL [Suspect]
     Indication: OVARIAN CANCER RECURRENT
     Route: 042
  2. SENNOSIDE [Concomitant]
     Route: 048
  3. VITANEURIN [Concomitant]
     Route: 048
  4. CALCIUM LACTATE [Concomitant]
     Route: 048
  5. ONEALFA [Concomitant]
     Route: 048
  6. LASIX [Concomitant]
     Route: 048
  7. ALDACTONE [Concomitant]
     Route: 048
  8. NOVAMIN [Concomitant]
     Indication: VOMITING
     Route: 048
  9. SERENACE [Concomitant]
     Indication: VOMITING
     Route: 042
  10. DEXART [Concomitant]
     Indication: MALAISE
     Route: 042

REACTIONS (7)
  - DECREASED APPETITE [None]
  - DISEASE PROGRESSION [None]
  - MALAISE [None]
  - NAUSEA [None]
  - VOMITING [None]
  - VULVAL ULCERATION [None]
  - VULVAR EROSION [None]
